FAERS Safety Report 11601305 (Version 2)
Quarter: 2015Q4

REPORT INFORMATION
  Report Type: Report from Study
  Country: US (occurrence: US)
  Receive Date: 20151006
  Receipt Date: 20151226
  Transmission Date: 20160304
  Serious: Yes (Other)
  Sender: FDA-Public Use
  Company Number: US-AMGEN-USASP2015015912

PATIENT
  Age: 60 Year
  Sex: Female

DRUGS (6)
  1. PROLIA [Suspect]
     Active Substance: DENOSUMAB
     Indication: OSTEOPOROSIS
     Dosage: UNK
     Route: 065
     Dates: start: 20140918
  2. CALCIUM [Concomitant]
     Active Substance: CALCIUM
     Dosage: 2500 MG, UNK
  3. MULTIVITAMIN                       /00097801/ [Concomitant]
     Active Substance: VITAMINS
     Dosage: UNK UNK, QD
  4. VITAMIN D                          /00107901/ [Concomitant]
     Active Substance: ERGOCALCIFEROL
     Dosage: 2400 UNK, UNK
  5. SYNTHROID [Concomitant]
     Active Substance: LEVOTHYROXINE SODIUM
     Indication: THYROID DISORDER
  6. TEMAZEPAM ACTAVIS [Concomitant]
     Indication: SLEEP TERROR
     Dosage: 30 MG, UNK
     Dates: start: 20130118

REACTIONS (8)
  - Weight decreased [Unknown]
  - Osteonecrosis of jaw [Unknown]
  - Anxiety [Recovered/Resolved]
  - Agitation [Recovered/Resolved]
  - Short-bowel syndrome [Unknown]
  - Dizziness [Unknown]
  - Nightmare [Unknown]
  - Clostridium difficile infection [Unknown]

NARRATIVE: CASE EVENT DATE: 201412
